FAERS Safety Report 15225554 (Version 7)
Quarter: 2022Q1

REPORT INFORMATION
  Report Type: Spontaneous
  Country: PT (occurrence: PT)
  Receive Date: 20180801
  Receipt Date: 20220317
  Transmission Date: 20220423
  Serious: Yes (Life-Threatening, Hospitalization, Other)
  Sender: FDA-Public Use
  Company Number: None

PATIENT
  Age: 51 Year
  Sex: Female
  Weight: 72 kg

DRUGS (27)
  1. ETHINYL ESTRADIOL\GESTODENE [Interacting]
     Active Substance: ETHINYL ESTRADIOL\GESTODENE
     Indication: Weight decreased
     Dosage: UNK, (0.03  / 0.075 MG)
     Route: 048
  2. ETHINYL ESTRADIOL\GESTODENE [Interacting]
     Active Substance: ETHINYL ESTRADIOL\GESTODENE
     Indication: Weight control
  3. ETHINYL ESTRADIOL\GESTODENE [Interacting]
     Active Substance: ETHINYL ESTRADIOL\GESTODENE
     Indication: Oral contraception
  4. ETHINYL ESTRADIOL\GESTODENE [Interacting]
     Active Substance: ETHINYL ESTRADIOL\GESTODENE
     Indication: Contraception
  5. FUROSEMIDE [Interacting]
     Active Substance: FUROSEMIDE
     Indication: Weight decreased
     Dosage: 30 MILLIGRAM, TWO TIMES A DAY (60 MILLIGRAM ONCE A DAY)
     Route: 048
     Dates: start: 201706, end: 201807
  6. FUROSEMIDE [Interacting]
     Active Substance: FUROSEMIDE
     Indication: Weight control
  7. METFORMIN HYDROCHLORIDE [Interacting]
     Active Substance: METFORMIN HYDROCHLORIDE
     Indication: Weight decreased
     Dosage: 230 MILLIGRAM, TWO TIMES A DAY (460 MILLIGRAM, DAILY)
     Route: 048
     Dates: start: 201706, end: 201807
  8. METFORMIN HYDROCHLORIDE [Interacting]
     Active Substance: METFORMIN HYDROCHLORIDE
     Indication: Weight control
     Dosage: 230 MILLIGRAM, ONCE A DAY
     Route: 065
  9. TOPIRAMATE [Interacting]
     Active Substance: TOPIRAMATE
     Indication: Weight decreased
     Dosage: 35 MILLIGRAM, TWO TIMES A DAY, (70 MILLIGRAM, DAILY)
     Route: 048
     Dates: start: 201706
  10. TOPIRAMATE [Interacting]
     Active Substance: TOPIRAMATE
     Indication: Weight control
     Dosage: 35 MILLIGRAM, ONCE A DAY
     Route: 065
  11. RHAMNUS PURSHIANA BARK EXTRACT [Interacting]
     Active Substance: RHAMNUS PURSHIANA BARK EXTRACT
     Indication: Weight decreased
     Dosage: 60 MILLIGRAM, TWO TIMES A DAY (120 MILLIGRAM, DAILY)
     Route: 048
     Dates: start: 201706, end: 201807
  12. RHAMNUS PURSHIANA BARK EXTRACT [Interacting]
     Active Substance: RHAMNUS PURSHIANA BARK EXTRACT
     Indication: Weight control
  13. CHLORDIAZEPOXIDE [Interacting]
     Active Substance: CHLORDIAZEPOXIDE
     Indication: Weight decreased
     Dosage: 10 MILLIGRAM, TWO TIMES A DAY (20 MG DAILY)
     Route: 048
     Dates: start: 201706, end: 201807
  14. CHLORDIAZEPOXIDE [Interacting]
     Active Substance: CHLORDIAZEPOXIDE
     Indication: Weight control
     Dosage: UNK
  15. HERBALS [Interacting]
     Active Substance: HERBALS
     Indication: Weight decreased
     Dosage: 400 MILLIGRAM, ONCE A DAY
     Route: 048
     Dates: start: 201706, end: 201807
  16. HERBALS [Interacting]
     Active Substance: HERBALS
     Indication: Weight decreased
     Dosage: 120 MILLIGRAM, ONCE A DAY
     Route: 048
     Dates: start: 201706, end: 201807
  17. HERBALS [Interacting]
     Active Substance: HERBALS
     Dosage: 60 MILLIGRAM, ONCE A DAY
     Route: 065
  18. GESTODENE [Interacting]
     Active Substance: GESTODENE
     Indication: Oral contraception
     Dosage: 0.08 MILLIGRAM, 0.075 MG, UNK
     Route: 048
  19. DIETARY SUPPLEMENT [Interacting]
     Active Substance: DIETARY SUPPLEMENT
     Indication: Weight decreased
     Dosage: 70 MILLIGRAM, TWO TIMES A DAY (140 MG, DAILY)
     Route: 048
     Dates: start: 201706, end: 201807
  20. DIETARY SUPPLEMENT [Interacting]
     Active Substance: DIETARY SUPPLEMENT
     Indication: Weight control
     Dosage: 70 MILLIGRAM, ONCE A DAY
     Route: 065
  21. ETHINYL ESTRADIOL\GESTODENE [Interacting]
     Active Substance: ETHINYL ESTRADIOL\GESTODENE
     Indication: Contraception
     Dosage: 1 DOSAGE FORM, ONCE A DAY
     Route: 048
     Dates: start: 2002, end: 201807
  22. ETHINYL ESTRADIOL\GESTODENE [Interacting]
     Active Substance: ETHINYL ESTRADIOL\GESTODENE
     Indication: Oral contraception
  23. WELLBUTRIN [Interacting]
     Active Substance: BUPROPION HYDROCHLORIDE
     Indication: Weight decreased
     Dosage: 240 MILLIGRAM, TWO TIMES A DAY
     Route: 048
     Dates: start: 201706, end: 201807
  24. WELLBUTRIN [Interacting]
     Active Substance: BUPROPION HYDROCHLORIDE
     Indication: Weight control
     Dosage: 120 MILLIGRAM, TWO TIMES A DAY
     Route: 048
     Dates: start: 201706, end: 201807
  25. WELLBUTRIN [Interacting]
     Active Substance: BUPROPION HYDROCHLORIDE
     Dosage: 120 MILLIGRAM, ONCE A DAY
     Route: 065
  26. LEVOTHYROXINE SODIUM [Concomitant]
     Active Substance: LEVOTHYROXINE SODIUM
     Indication: Hypothyroidism
     Dosage: 0.1 MILLIGRAM, ONCE A DAY
     Route: 048
     Dates: start: 2014
  27. LEVOTHYROXINE SODIUM [Concomitant]
     Active Substance: LEVOTHYROXINE SODIUM
     Dosage: 0.1 MILLIGRAM, EVERY 1 YEAR
     Route: 065
     Dates: start: 2014

REACTIONS (7)
  - Cerebral venous thrombosis [Recovered/Resolved]
  - Headache [Recovered/Resolved]
  - Drug interaction [Recovered/Resolved]
  - Product use in unapproved indication [Unknown]
  - Intentional product misuse [Unknown]
  - Intentional product use issue [Unknown]
  - Off label use [Unknown]

NARRATIVE: CASE EVENT DATE: 20180619
